FAERS Safety Report 9983788 (Version 1)
Quarter: 2014Q1

REPORT INFORMATION
  Report Type: Spontaneous
  Country: BR (occurrence: BR)
  Receive Date: 20140307
  Receipt Date: 20140307
  Transmission Date: 20141002
  Serious: Yes (Hospitalization)
  Sender: FDA-Public Use
  Company Number: BR-GLAXOSMITHKLINE-A1063917A

PATIENT
  Sex: 0

DRUGS (1)
  1. PAZOPANIB [Suspect]
     Indication: PRODUCT USED FOR UNKNOWN INDICATION
     Route: 065

REACTIONS (4)
  - Femoral artery occlusion [Unknown]
  - Peripheral arterial occlusive disease [None]
  - Vascular calcification [None]
  - Arteriosclerosis [None]
